FAERS Safety Report 5128826-X (Version None)
Quarter: 2006Q4

REPORT INFORMATION
  Report Type: 
  Country: None (occurrence: None)
  Receive Date: 20061011
  Receipt Date: 20060919
  Transmission Date: 20070319
  Serious: Yes (Other)
  Sender: FDA-Public Use
  Company Number: US200605002862

PATIENT
  Age: 16 Year
  Sex: Female
  Weight: 63.3 kg

DRUGS (4)
  1. HUMATROPE [Suspect]
     Indication: GROWTH HORMONE DEFICIENCY
     Dosage: 2.8 MBQ, DAILY (1/D), SUBCUTANEOUS
     Route: 058
     Dates: start: 20060511
  2. HUMATROPEN (HUMATROPEN) PEN, REUSABLE [Concomitant]
  3. LEVOTHYROXINE SODIUM [Concomitant]
  4. HYDROCORTISONE [Concomitant]

REACTIONS (2)
  - GRAND MAL CONVULSION [None]
  - LOSS OF CONSCIOUSNESS [None]
